FAERS Safety Report 7047521-3 (Version None)
Quarter: 2010Q4

REPORT INFORMATION
  Report Type: 
  Country: None (occurrence: None)
  Receive Date: 20101015
  Receipt Date: 20101004
  Transmission Date: 20110411
  Serious: Yes (Hospitalization, Other)
  Sender: FDA-Public Use
  Company Number: BR-PFIZER INC-2010125459

PATIENT
  Age: 51 Year
  Sex: Female
  Weight: 59 kg

DRUGS (5)
  1. FRONTAL [Suspect]
     Indication: DEPRESSION
     Dosage: 1 MG, UNK
     Route: 048
     Dates: start: 19840101
  2. FRONTAL [Suspect]
     Dosage: 1 MG, 2X/DAY (EVERY 12 HOURS)
     Route: 048
  3. OMEPRAZOLE [Suspect]
     Indication: GASTRIC DISORDER
     Dosage: UNK
  4. RIVOTRIL [Concomitant]
     Indication: PANIC DISORDER
     Dosage: 5 MG, 1X/DAY
     Dates: start: 20070101, end: 20100701
  5. RIVOTRIL [Concomitant]
     Dosage: 15 MG/DAY (3 TABLETS OF 5MG PER DAY)
     Dates: start: 20100701

REACTIONS (15)
  - ANAPHYLACTIC SHOCK [None]
  - BONE DISORDER [None]
  - CHEST PAIN [None]
  - CHOLELITHIASIS [None]
  - DRUG DEPENDENCE [None]
  - FEAR [None]
  - HYPERSENSITIVITY [None]
  - INSOMNIA [None]
  - MYALGIA [None]
  - PAIN [None]
  - PANIC REACTION [None]
  - SWELLING [None]
  - TUBERCULOSIS [None]
  - VISUAL IMPAIRMENT [None]
  - WEIGHT DECREASED [None]
